FAERS Safety Report 9228269 (Version 2)
Quarter: 2013Q2

REPORT INFORMATION
  Report Type: Report from Study
  Country: DE (occurrence: DE)
  Receive Date: 20130412
  Receipt Date: 20130506
  Transmission Date: 20140414
  Serious: Yes (Death)
  Sender: FDA-Public Use
  Company Number: DE-ROCHE-1208983

PATIENT
  Sex: 0

DRUGS (4)
  1. ALTEPLASE [Suspect]
     Indication: ISCHAEMIC STROKE
     Dosage: THIS WAS GIVEN WITHIN A RANGE OF 60 TO 270 MINUTES.
     Route: 042
  2. TIROFIBAN HYDROCHLORIDE [Suspect]
     Indication: ISCHAEMIC STROKE
     Dosage: BOLUS OF 0.4 UG/KG BODY WEIGHT/ MIN
     Route: 065
  3. TIROFIBAN HYDROCHLORIDE [Suspect]
     Dosage: CONTINUOUS INFUSION OF 0.1 UG/KG BODY WEIGHT/ MIN FOR AT LEAST 24 HOURS
     Route: 065
  4. HEPARIN [Suspect]
     Indication: ISCHAEMIC STROKE
     Route: 042

REACTIONS (1)
  - Cerebral infarction [Fatal]
